FAERS Safety Report 16045726 (Version 1)
Quarter: 2019Q2

REPORT INFORMATION
  Report Type: Spontaneous
  Country: UM (occurrence: UM)
  Receive Date: 20190306
  Receipt Date: 20190306
  Transmission Date: 20190711
  Serious: Yes (Other)
  Sender: FDA-Public Use
  Company Number: None

PATIENT
  Age: 74 Year
  Sex: Female
  Weight: 83.25 kg

DRUGS (7)
  1. LOSARTAN 50 MG TABLETS BY AUROBINDO [Suspect]
     Active Substance: LOSARTAN
     Indication: HYPERTENSION
     Route: 048
     Dates: start: 20190218, end: 20190222
  2. OXYBUTYNIN. [Concomitant]
     Active Substance: OXYBUTYNIN CHLORIDE
  3. C-PAP MACHINE [Concomitant]
     Active Substance: DEVICE
  4. SERTRALINE [Concomitant]
     Active Substance: SERTRALINE HYDROCHLORIDE
  5. ADULT MULTIPLE VITAMIN [Concomitant]
  6. METAMUCIL [Concomitant]
     Active Substance: PLANTAGO SEED
  7. VITAMIN D3 [Concomitant]
     Active Substance: CHOLECALCIFEROL

REACTIONS (7)
  - Confusional state [None]
  - Headache [None]
  - Fatigue [None]
  - Urinary incontinence [None]
  - Product substitution issue [None]
  - Ear pain [None]
  - Abdominal discomfort [None]

NARRATIVE: CASE EVENT DATE: 20190222
